FAERS Safety Report 22109840 (Version 3)
Quarter: 2023Q2

REPORT INFORMATION
  Report Type: Spontaneous
  Country: US (occurrence: US)
  Receive Date: 20230317
  Receipt Date: 20230426
  Transmission Date: 20230722
  Serious: Yes (Other)
  Sender: FDA-Public Use
  Company Number: US-ORGANON-O2303USA001172

PATIENT
  Age: 43 Year
  Sex: Female
  Weight: 102.49 kg

DRUGS (9)
  1. NEXPLANON [Suspect]
     Active Substance: ETONOGESTREL
     Indication: Contraception
     Dosage: 1 ROD EVERY 3 YEARS IN LEFT ARM
     Route: 059
     Dates: start: 20230307, end: 20230309
  2. NEXPLANON [Concomitant]
     Active Substance: ETONOGESTREL
     Dosage: 1 IMPLANT
     Route: 059
     Dates: start: 202003, end: 20230307
  3. GLUCOTROL [Concomitant]
     Active Substance: GLIPIZIDE
     Dosage: TAKE 1 TABLET (10 MG TOTAL) BY MOUTH 2 (TWO) TIMES A DAY BEFORE MEALS- ORAL
     Route: 048
     Dates: start: 20230118, end: 20230418
  4. METFORMIN [Concomitant]
     Active Substance: METFORMIN HYDROCHLORIDE
     Dosage: TAKE 1 TABLET (1000 MG TOTAL) BY MOUTH ONCE DAILY-ORAL
     Route: 048
     Dates: start: 20230118, end: 20230418
  5. SEMAGLUTIDE [Concomitant]
     Active Substance: SEMAGLUTIDE
     Dosage: TAKE 14 MG BY MOUTH ONCE DAILY- ORAL
     Route: 048
     Dates: start: 20230118, end: 20230418
  6. ZESTRIL [Concomitant]
     Active Substance: LISINOPRIL
     Dosage: TAKE 1 TABLET (40 MG TOTAL) BY MOUTH ONCE DAILY-ORAL
     Route: 048
     Dates: start: 20221020, end: 20230418
  7. PRAVASTATIN [Concomitant]
     Active Substance: PRAVASTATIN
     Dosage: TAKE 1 TABLET (40 MG TOTAL) BY MOUTH ONCE DAILY-ORAL
     Route: 048
     Dates: start: 20220709
  8. SODIUM FLUORIDE [Concomitant]
     Active Substance: SODIUM FLUORIDE
     Dosage: SMARTSIG: BY MOUTH
     Route: 048
     Dates: start: 20220404
  9. PRINIVIL [Concomitant]
     Active Substance: LISINOPRIL
     Dosage: TAKE 1 TABLET (40 MG TOTAL) BY MOUTH ONCE DAILY-ORAL
     Route: 048
     Dates: start: 20221020, end: 20230418

REACTIONS (2)
  - Device expulsion [Recovered/Resolved]
  - No adverse event [Unknown]

NARRATIVE: CASE EVENT DATE: 20230309
